FAERS Safety Report 6181813-5 (Version None)
Quarter: 2009Q2

REPORT INFORMATION
  Report Type: 
  Country: None (occurrence: None)
  Receive Date: 20090506
  Receipt Date: 20090428
  Transmission Date: 20091009
  Serious: Yes (Other)
  Sender: FDA-Public Use
  Company Number: PHEH2009US04155

PATIENT
  Sex: Male

DRUGS (2)
  1. ZOMETA [Suspect]
     Indication: MULTIPLE MYELOMA
     Dosage: Q4 WEEKS
  2. CHEMOTHERAPEUTICS NOS [Concomitant]
     Indication: MULTIPLE MYELOMA

REACTIONS (2)
  - ARTHRALGIA [None]
  - OSTEONECROSIS [None]
